FAERS Safety Report 7791846-0 (Version None)
Quarter: 2011Q4

REPORT INFORMATION
  Report Type: 
  Country: None (occurrence: None)
  Receive Date: 20111003
  Receipt Date: 20110927
  Transmission Date: 20120403
  Serious: Yes (Other)
  Sender: FDA-Public Use
  Company Number: US-SANOFI-AVENTIS-2011SA063904

PATIENT
  Age: 61 Year
  Sex: Female

DRUGS (4)
  1. ALLEGRA-D - SLOW RELEASE [Suspect]
     Route: 065
     Dates: end: 20110101
  2. FLONASE [Suspect]
     Route: 065
  3. ALLEGRA-D - SLOW RELEASE [Suspect]
     Route: 065
     Dates: start: 20110101
  4. ALLEGRA [Suspect]
     Route: 065
     Dates: start: 20090101, end: 20090101

REACTIONS (5)
  - CORONARY ARTERY BYPASS [None]
  - PRODUCTIVE COUGH [None]
  - DRUG INEFFECTIVE [None]
  - PNEUMONIA [None]
  - EPISTAXIS [None]
